FAERS Safety Report 9350909 (Version 3)
Quarter: 2014Q1

REPORT INFORMATION
  Report Type: Spontaneous
  Country: US (occurrence: US)
  Receive Date: 20130617
  Receipt Date: 20140217
  Transmission Date: 20141002
  Serious: Yes (Hospitalization, Other)
  Sender: FDA-Public Use
  Company Number: US-BAYER-2013-070568

PATIENT
  Age: 32 Year
  Sex: Female
  Weight: 117.91 kg

DRUGS (8)
  1. MIRENA [Suspect]
     Indication: CONTRACEPTION
     Dosage: 20 MCG/24HR, CONT
     Route: 015
     Dates: start: 201102, end: 20110607
  2. NORETHINDRONE [Concomitant]
     Dosage: 0.35 MG, 1 TAB DAILY
     Route: 048
  3. LANSOPRAZOLE [Concomitant]
     Dosage: 30 MG, 1 CAP DAILY
     Route: 048
  4. BUPROPION SR [Concomitant]
     Dosage: 150 MG, 1 TAB DAILY
     Route: 048
  5. LEVOTHYROXINE [Concomitant]
     Dosage: 25 MCG, 1 TABLET DAILY
     Route: 048
  6. PRENATAL PLUS IRON [Concomitant]
     Dosage: 27-1, 1 TAB DAILY
     Route: 048
  7. ARMODAFINIL [Concomitant]
     Dosage: 150 MG, 1 TABLET DAILY
     Route: 048
  8. XYZAL [Concomitant]
     Indication: SEASONAL ALLERGY
     Dosage: UNK, AS NEEDED
     Dates: start: 2010

REACTIONS (12)
  - Uterine perforation [None]
  - Genital haemorrhage [None]
  - Injury [None]
  - Device dislocation [None]
  - Device dislocation [None]
  - Post procedural discomfort [None]
  - Abdominal pain lower [None]
  - Pain [None]
  - Infection [None]
  - Menorrhagia [None]
  - Depression [None]
  - Device misuse [None]
